FAERS Safety Report 10441280 (Version 1)
Quarter: 2014Q3

REPORT INFORMATION
  Report Type: Report from Study
  Country: US (occurrence: US)
  Receive Date: 20140909
  Receipt Date: 20140909
  Transmission Date: 20150326
  Serious: Yes (Hospitalization)
  Sender: FDA-Public Use
  Company Number: US-SA-2014SA122451

PATIENT
  Age: 62 Year
  Sex: Male
  Weight: 64 kg

DRUGS (1)
  1. CABAZITAXEL [Suspect]
     Active Substance: CABAZITAXEL
     Indication: OESOPHAGEAL CARCINOMA
     Route: 065
     Dates: start: 20140317, end: 20140812

REACTIONS (2)
  - Hydronephrosis [Unknown]
  - Haematuria [Unknown]

NARRATIVE: CASE EVENT DATE: 20140827
